FAERS Safety Report 8185762-2 (Version None)
Quarter: 2012Q1

REPORT INFORMATION
  Report Type: 
  Country: None (occurrence: None)
  Receive Date: 20120305
  Receipt Date: 20120227
  Transmission Date: 20120608
  Serious: Yes (Other)
  Sender: FDA-Public Use
  Company Number: JP-PFIZER INC-2012042748

PATIENT
  Age: 77 Year
  Sex: Male

DRUGS (5)
  1. LYRICA [Suspect]
     Indication: SCIATICA
     Dosage: 150 MG DAILY
     Route: 048
     Dates: start: 20110905, end: 20120214
  2. FAMOTIDINE [Concomitant]
     Dosage: UNK
     Route: 048
  3. HALCION [Concomitant]
     Dosage: 0.25 MG DAILY
     Route: 048
  4. LYRICA [Suspect]
     Dosage: 75 MG, 2X/DAY
     Route: 048
     Dates: start: 20120218
  5. METHYCOBAL [Concomitant]
     Indication: SCIATICA
     Dosage: 1500MG/DAY
     Route: 048
     Dates: start: 20110905

REACTIONS (1)
  - HAEMARTHROSIS [None]
